FAERS Safety Report 10282747 (Version 5)
Quarter: 2014Q4

REPORT INFORMATION
  Report Type: Spontaneous
  Country: JP (occurrence: JP)
  Receive Date: 20140708
  Receipt Date: 20141117
  Transmission Date: 20150528
  Serious: Yes (Death, Other)
  Sender: FDA-Public Use
  Company Number: JP-PFIZER INC-2014187005

PATIENT
  Age: 54 Year
  Sex: Male
  Weight: 30 kg

DRUGS (18)
  1. GRANISETRON [Concomitant]
     Active Substance: GRANISETRON
     Dosage: UNK
     Dates: start: 20140409, end: 20140526
  2. NEUTROGIN [Concomitant]
     Active Substance: LENOGRASTIM
     Dosage: UNK
     Dates: start: 20140602, end: 20140604
  3. LEVOFOLINATE CALCIUM [Concomitant]
     Active Substance: LEUCOVORIN CALCIUM
     Indication: PANCREATIC CARCINOMA
     Dosage: 140 MG/BODY (113.4 MG/M2), D1+2
     Dates: start: 20140409, end: 20140410
  4. CAMPTO [Suspect]
     Active Substance: IRINOTECAN
     Dosage: 200 MG, ONCE DAILY, CYCLIC
     Route: 041
     Dates: start: 20140526, end: 20140526
  5. LEVOFOLINATE CALCIUM [Concomitant]
     Active Substance: LEUCOVORIN CALCIUM
     Dosage: UNK, CYCLIC
     Dates: end: 20140526
  6. ELPLAT [Suspect]
     Active Substance: OXALIPLATIN
     Dosage: 120 MG, ONCE DAILY, CYCLIC
     Route: 041
     Dates: start: 20140526, end: 20140526
  7. DECADRON [Concomitant]
     Active Substance: DEXAMETHASONE
     Dosage: UNK
     Dates: start: 20140409, end: 20140526
  8. CAMPTO [Suspect]
     Active Substance: IRINOTECAN
     Dosage: 200 MG, ONCE DAILY, CYCLIC
     Route: 041
     Dates: start: 20140507, end: 20140507
  9. ELPLAT [Suspect]
     Active Substance: OXALIPLATIN
     Indication: PANCREATIC CARCINOMA
     Dosage: 120 MG/BODY (97.2 MG/M2) ONCE DAILY, CYCLIC
     Route: 041
     Dates: start: 20140409, end: 20140409
  10. ELPLAT [Suspect]
     Active Substance: OXALIPLATIN
     Dosage: 120 MG, ONCE DAILY, CYCLIC
     Route: 041
     Dates: start: 20140507, end: 20140507
  11. CAMPTO [Suspect]
     Active Substance: IRINOTECAN
     Indication: PANCREATIC CARCINOMA
     Dosage: 200 MG/BODY (161.9 MG/M2) ONCE DAILY, CYCLIC
     Route: 041
     Dates: start: 20140409, end: 20140409
  12. 5-FU [Concomitant]
     Active Substance: FLUOROURACIL
     Dosage: 750 MG/BODY (607.3 MG/M2), D1-2
     Route: 041
     Dates: start: 20140409, end: 20140410
  13. 5-FU [Concomitant]
     Active Substance: FLUOROURACIL
     Dosage: 3250 MG/BODY (2631.6 MG/M2), D 1-2
     Route: 041
     Dates: start: 20140507, end: 20140508
  14. 5-FU [Concomitant]
     Active Substance: FLUOROURACIL
     Dosage: UNK
     Route: 041
     Dates: end: 20140526
  15. LEVOFOLINATE CALCIUM [Concomitant]
     Active Substance: LEUCOVORIN CALCIUM
     Dosage: 280 MG/BODY (226.7 MG/M2), D1-2
     Dates: start: 20140507, end: 20140508
  16. BFLUID [Concomitant]
     Active Substance: AMINO ACIDS\DEXTROSE\ELECTROLYTES NOS\VITAMINS
     Dosage: UNK
     Dates: start: 20140603, end: 20140606
  17. GRAN [Concomitant]
     Active Substance: FILGRASTIM
     Dosage: UNK
     Dates: start: 20140605, end: 20140606
  18. 5-FU [Concomitant]
     Active Substance: FLUOROURACIL
     Indication: PANCREATIC CARCINOMA
     Dosage: 500 MG/BODY (404.9 MG/M2), D 1-2
     Route: 040
     Dates: start: 20140409, end: 20140410

REACTIONS (7)
  - Pancreatic carcinoma [Fatal]
  - Neutrophil count decreased [Not Recovered/Not Resolved]
  - Disease progression [Fatal]
  - White blood cell count decreased [Not Recovered/Not Resolved]
  - Sepsis [Fatal]
  - Platelet count decreased [Not Recovered/Not Resolved]
  - Haemoglobin decreased [Not Recovered/Not Resolved]

NARRATIVE: CASE EVENT DATE: 2014
